FAERS Safety Report 18266497 (Version 1)
Quarter: 2020Q3

REPORT INFORMATION
  Report Type: Spontaneous
  Country: US (occurrence: US)
  Receive Date: 20200914
  Receipt Date: 20200914
  Transmission Date: 20201103
  Serious: Yes (Other)
  Sender: FDA-Public Use
  Company Number: None

PATIENT
  Age: 67 Year
  Sex: Female
  Weight: 78.5 kg

DRUGS (4)
  1. LISINOPRIL 10MG BID [Concomitant]
     Dates: start: 20200904
  2. PRAVASTATIN 40MG HS [Concomitant]
     Dates: start: 20200904
  3. REMDESIVIR. [Suspect]
     Active Substance: REMDESIVIR
     Indication: COVID-19
     Route: 040
     Dates: start: 20200905, end: 20200907
  4. ENOXAPARIN 40MG SC DAILY [Concomitant]

REACTIONS (1)
  - Liver function test increased [None]

NARRATIVE: CASE EVENT DATE: 20200907
